FAERS Safety Report 10801673 (Version 2)
Quarter: 2015Q2

REPORT INFORMATION
  Report Type: Spontaneous
  Country: DE (occurrence: DE)
  Receive Date: 20150217
  Receipt Date: 20150608
  Transmission Date: 20150821
  Serious: Yes (Life-Threatening, Hospitalization)
  Sender: FDA-Public Use
  Company Number: DE-JNJFOC-20150206711

PATIENT
  Age: 55 Year
  Sex: Female

DRUGS (3)
  1. L THYROXIN [Concomitant]
     Active Substance: LEVOTHYROXINE SODIUM
     Indication: HYPOTHYROIDISM
     Route: 048
  2. IBRUTINIB [Suspect]
     Active Substance: IBRUTINIB
     Indication: CHRONIC LYMPHOCYTIC LEUKAEMIA
     Route: 048
     Dates: start: 20150120
  3. ACICLOVIR [Concomitant]
     Active Substance: ACYCLOVIR
     Indication: PROPHYLAXIS
     Route: 048
     Dates: start: 201501

REACTIONS (11)
  - Febrile neutropenia [Unknown]
  - Thrombocytopenia [Unknown]
  - Herpes simplex [Unknown]
  - Circulatory collapse [Unknown]
  - Acquired immunodeficiency syndrome [Unknown]
  - Normochromic normocytic anaemia [Unknown]
  - Neutropenia [Unknown]
  - Coombs positive haemolytic anaemia [Recovering/Resolving]
  - Syncope [Unknown]
  - Vertigo [Unknown]
  - Fall [Unknown]

NARRATIVE: CASE EVENT DATE: 201501
